FAERS Safety Report 4505238-0 (Version None)
Quarter: 2004Q4

REPORT INFORMATION
  Report Type: 
  Country: None (occurrence: None)
  Receive Date: 20041118
  Receipt Date: 20041118
  Transmission Date: 20050328
  Serious: Yes (Other)
  Sender: FDA-Public Use
  Company Number: None

PATIENT
  Age: 58 Year
  Sex: Male
  Weight: 86.4 kg

DRUGS (1)
  1. RITUXAN [Suspect]
     Indication: NON-HODGKIN'S LYMPHOMA
     Dosage: 780 MG IV XI
     Route: 042
     Dates: start: 20041106

REACTIONS (3)
  - INFUSION RELATED REACTION [None]
  - PRURITUS [None]
  - RASH ERYTHEMATOUS [None]
